FAERS Safety Report 22593901 (Version 1)
Quarter: 2023Q2

REPORT INFORMATION
  Report Type: Spontaneous
  Country: IT (occurrence: IT)
  Receive Date: 20230613
  Receipt Date: 20230613
  Transmission Date: 20230722
  Serious: Yes (Other)
  Sender: FDA-Public Use
  Company Number: None

PATIENT
  Age: 97 Year
  Sex: Male

DRUGS (1)
  1. PIPERACILLIN SODIUM\TAZOBACTAM SODIUM [Suspect]
     Active Substance: PIPERACILLIN SODIUM\TAZOBACTAM SODIUM
     Indication: Sepsis
     Dosage: PIPERACILLIN/TAZOBACTAM 4G + 500 MG X 3/DAY
     Route: 042
     Dates: start: 20230523, end: 20230526

REACTIONS (2)
  - Melaena [None]
  - Thrombocytopenia [None]

NARRATIVE: CASE EVENT DATE: 20230523
